FAERS Safety Report 8261823-4 (Version None)
Quarter: 2012Q2

REPORT INFORMATION
  Report Type: 
  Country: None (occurrence: None)
  Receive Date: 20120405
  Receipt Date: 20120329
  Transmission Date: 20120825
  Serious: Yes (Death)
  Sender: FDA-Public Use
  Company Number: US-CELGENEUS-163-21880-12020135

PATIENT
  Sex: Male

DRUGS (5)
  1. PLAVIX [Concomitant]
     Dosage: 75
     Route: 065
  2. ASPIRIN [Concomitant]
     Dosage: 81
     Route: 065
  3. REVLIMID [Suspect]
     Indication: B-CELL LYMPHOMA
     Dosage: 10 MILLIGRAM
     Route: 048
     Dates: start: 20120127, end: 20120130
  4. GABAPENTIN [Concomitant]
     Dosage: 100 MILLIGRAM
     Route: 065
  5. AMBIEN CR [Concomitant]
     Indication: SLEEP DISORDER
     Dosage: 12.5
     Route: 065

REACTIONS (2)
  - B-CELL LYMPHOMA [None]
  - PLEURAL EFFUSION [None]
